FAERS Safety Report 5196584-9 (Version None)
Quarter: 2006Q4

REPORT INFORMATION
  Report Type: 
  Country: None (occurrence: None)
  Receive Date: 20061229
  Receipt Date: 20061229
  Transmission Date: 20070319
  Serious: Yes (Other)
  Sender: FDA-Public Use
  Company Number: None

PATIENT
  Age: 78 Year
  Sex: Female
  Weight: 49.8957 kg

DRUGS (2)
  1. IMDUR [Suspect]
     Indication: CORONARY ARTERY DISEASE
     Dosage: 120MG ORAL
     Route: 048
  2. IMDUR [Suspect]
     Indication: HYPERTENSION
     Dosage: 120MG ORAL
     Route: 048

REACTIONS (4)
  - DYSPHAGIA [None]
  - NAUSEA [None]
  - SWELLING [None]
  - VISION BLURRED [None]
